FAERS Safety Report 11363231 (Version 1)
Quarter: 2015Q3

REPORT INFORMATION
  Report Type: Spontaneous
  Country: US (occurrence: None)
  Receive Date: 20150810
  Receipt Date: 20150810
  Transmission Date: 20151125
  Serious: Yes (Hospitalization)
  Sender: FDA-Public Use
  Company Number: None

PATIENT
  Age: 44 Year
  Sex: Female
  Weight: 74.2 kg

DRUGS (1)
  1. CISPLATIN. [Suspect]
     Active Substance: CISPLATIN
     Dates: end: 20141022

REACTIONS (14)
  - Abdominal pain [None]
  - Nausea [None]
  - Febrile neutropenia [None]
  - Anaemia [None]
  - Inadequate analgesia [None]
  - Pyrexia [None]
  - Dehydration [None]
  - Vomiting [None]
  - Chills [None]
  - Pollakiuria [None]
  - Urinary tract infection [None]
  - Bandaemia [None]
  - Bacteraemia [None]
  - Vaginal haemorrhage [None]

NARRATIVE: CASE EVENT DATE: 20141103
